FAERS Safety Report 7724097-6 (Version None)
Quarter: 2011Q3

REPORT INFORMATION
  Report Type: 
  Country: None (occurrence: None)
  Receive Date: 20110901
  Receipt Date: 20110829
  Transmission Date: 20111222
  Serious: Yes (Death, Other)
  Sender: FDA-Public Use
  Company Number: US-ASTRAZENECA-2008UW08897

PATIENT
  Age: 68 Year
  Sex: Female
  Weight: 56.7 kg

DRUGS (20)
  1. SEROQUEL [Suspect]
     Dosage: VARIOUS DOSES INCLUDING BUT NOT LIMITED TO 25MG AND 200MG
     Route: 048
     Dates: start: 20031101
  2. LEXAPRO [Concomitant]
     Dates: start: 20020101
  3. ATIVAN [Concomitant]
     Dates: start: 19990101
  4. HALDOL [Concomitant]
     Dates: start: 20000101
  5. PHENTERMINE [Concomitant]
     Dates: start: 20040101
  6. ABILIFY [Concomitant]
     Dates: start: 20060101
  7. EXELON [Concomitant]
     Route: 048
     Dates: start: 20060303
  8. SEROQUEL [Suspect]
     Indication: BIPOLAR DISORDER
     Route: 048
     Dates: start: 20030113
  9. SEROQUEL [Suspect]
     Route: 048
     Dates: start: 20030211
  10. EFFEXOR [Concomitant]
     Dates: start: 20000101
  11. DEPAKOTE [Concomitant]
     Dosage: TAKE 1 TABLET EVERY MORNING AND 2 TABLETS AT BEDTIME
     Dates: start: 20030121
  12. LIPITOR [Concomitant]
     Route: 048
     Dates: start: 20030224
  13. COGENTIN [Concomitant]
     Dates: start: 20000101
  14. DEPAKOTE [Concomitant]
     Dates: start: 20000101
  15. DOXEPIN [Concomitant]
     Dates: start: 20010101
  16. NORTRIPTYLINE HCL [Concomitant]
     Dates: start: 20030101
  17. SERZONE [Concomitant]
     Dates: start: 20010101
  18. ACTONEL [Concomitant]
     Route: 048
     Dates: start: 20050524
  19. AMITRIPTYLINE HCL [Concomitant]
     Dates: start: 20010101
  20. LAMICTAL [Concomitant]
     Dates: start: 20000101

REACTIONS (5)
  - BLOOD CHOLESTEROL INCREASED [None]
  - CHRONIC OBSTRUCTIVE PULMONARY DISEASE [None]
  - RESPIRATORY FAILURE [None]
  - CARDIOMYOPATHY [None]
  - TYPE 2 DIABETES MELLITUS [None]
